FAERS Safety Report 8415473-7 (Version None)
Quarter: 2012Q2

REPORT INFORMATION
  Report Type: 
  Country: None (occurrence: None)
  Receive Date: 20120606
  Receipt Date: 20120601
  Transmission Date: 20120825
  Serious: Yes (Other)
  Sender: FDA-Public Use
  Company Number: PHHY2012CA047694

PATIENT
  Age: 69 Year
  Sex: Female

DRUGS (2)
  1. FEMARA [Suspect]
  2. ANTIDEPRESSANTS [Concomitant]

REACTIONS (3)
  - PARANOIA [None]
  - BIPOLAR I DISORDER [None]
  - MEMORY IMPAIRMENT [None]
